FAERS Safety Report 8323607 (Version 10)
Quarter: 2014Q2

REPORT INFORMATION
  Report Type: Report from Study
  Country: DE (occurrence: DE)
  Receive Date: 20120105
  Receipt Date: 20140421
  Transmission Date: 20141212
  Serious: Yes (Hospitalization)
  Sender: FDA-Public Use
  Company Number: DE-ROCHE-1027416

PATIENT
  Age: 76 Year
  Sex: Male
  Weight: 102 kg

DRUGS (4)
  1. VEMURAFENIB [Suspect]
     Indication: METASTATIC MALIGNANT MELANOMA
     Dosage: PERMANENTLY DISCONTINUED
     Route: 048
     Dates: start: 20111228, end: 20111231
  2. L-THYROXINE [Concomitant]
     Dosage: 100 + 75/UG
     Route: 065
  3. KALIUMIODID [Concomitant]
  4. ASS [Concomitant]
     Dosage: 50/MG
     Route: 065

REACTIONS (1)
  - Pancreatitis acute [Recovered/Resolved]
